FAERS Safety Report 4539899-7 (Version None)
Quarter: 2004Q4

REPORT INFORMATION
  Report Type: 
  Country: None (occurrence: None)
  Receive Date: 20041223
  Receipt Date: 20041214
  Transmission Date: 20050328
  Serious: Yes (Other)
  Sender: FDA-Public Use
  Company Number: 2004095345

PATIENT
  Age: 41 Year
  Sex: Female

DRUGS (3)
  1. TOLTERODINE (TOLTERODINE) [Suspect]
     Indication: POLLAKIURIA
     Dates: start: 19991201, end: 20041001
  2. DIANE (CYPROTEONE ACETATE, ETHINYLESTRADIOL) [Concomitant]
  3. CLOXAZOLAM (CLOXAZOLAM) [Concomitant]

REACTIONS (12)
  - ALOPECIA [None]
  - AUTOIMMUNE THYROIDITIS [None]
  - CONDITION AGGRAVATED [None]
  - DIZZINESS [None]
  - DRUG INEFFECTIVE [None]
  - DRUG TOLERANCE [None]
  - DRY MOUTH [None]
  - DRY SKIN [None]
  - FATIGUE [None]
  - HEADACHE [None]
  - HYPERTHYROIDISM [None]
  - UNEVALUABLE EVENT [None]
